FAERS Safety Report 17541044 (Version 1)
Quarter: 2020Q1

REPORT INFORMATION
  Report Type: Spontaneous
  Country: PE (occurrence: PE)
  Receive Date: 20200313
  Receipt Date: 20200313
  Transmission Date: 20200409
  Serious: Yes (Disabling)
  Sender: FDA-Public Use
  Company Number: PE-ALLERGAN-2010798US

PATIENT
  Sex: Female

DRUGS (3)
  1. VOLBELLA [Suspect]
     Active Substance: HYALURONIC ACID
     Indication: PERIORBITAL SWELLING
     Dosage: 1 ML, SINGLE
     Route: 058
     Dates: start: 20190103, end: 20190924
  2. BOTOX [Suspect]
     Active Substance: ONABOTULINUMTOXINA
     Indication: PRODUCT USED FOR UNKNOWN INDICATION
     Dosage: UNK UNK, SINGLE
     Dates: start: 20190905, end: 20190905
  3. BOTOX [Suspect]
     Active Substance: ONABOTULINUMTOXINA
     Dosage: UNK UNK, SINGLE
     Dates: start: 20190103, end: 20190103

REACTIONS (5)
  - Soft tissue disorder [Recovered/Resolved with Sequelae]
  - Erythema [Recovered/Resolved with Sequelae]
  - Swelling [Recovered/Resolved with Sequelae]
  - Sensitisation [Recovered/Resolved with Sequelae]
  - Face oedema [Recovered/Resolved with Sequelae]

NARRATIVE: CASE EVENT DATE: 20190805
